FAERS Safety Report 19056506 (Version 1)
Quarter: 2021Q1

REPORT INFORMATION
  Report Type: Spontaneous
  Country: US (occurrence: US)
  Receive Date: 20210325
  Receipt Date: 20210325
  Transmission Date: 20210420
  Serious: Yes (Hospitalization, Other)
  Sender: FDA-Public Use
  Company Number: US-DRREDDYS-USA/USA/21/0133319

PATIENT
  Age: 60 Year
  Sex: Male

DRUGS (2)
  1. RIVAROXABAN [Concomitant]
     Active Substance: RIVAROXABAN
     Indication: ATRIAL FIBRILLATION
  2. DOCETAXEL. [Suspect]
     Active Substance: DOCETAXEL
     Indication: PROSTATE CANCER METASTATIC

REACTIONS (4)
  - Carotid artery aneurysm [Recovering/Resolving]
  - Aneurysm ruptured [Recovering/Resolving]
  - Salmonellosis [Unknown]
  - Infective aneurysm [Recovering/Resolving]
